FAERS Safety Report 6250593-7 (Version None)
Quarter: 2009Q2

REPORT INFORMATION
  Report Type: 
  Country: None (occurrence: None)
  Receive Date: 20090626
  Receipt Date: 20090617
  Transmission Date: 20091009
  Serious: Yes (Hospitalization)
  Sender: FDA-Public Use
  Company Number: 8048025

PATIENT
  Sex: Female

DRUGS (2)
  1. KEPPRA [Suspect]
  2. VIMPAT [Suspect]
     Dosage: 150 MG 2/D

REACTIONS (1)
  - SYNCOPE [None]
